FAERS Safety Report 6355089-X (Version None)
Quarter: 2009Q3

REPORT INFORMATION
  Report Type: 
  Country: None (occurrence: None)
  Receive Date: 20090914
  Receipt Date: 20090904
  Transmission Date: 20100115
  Serious: Yes (Death, Other)
  Sender: FDA-Public Use
  Company Number: NO-JNJFOC-20090306462

PATIENT
  Sex: Male

DRUGS (2)
  1. REMICADE [Suspect]
     Dosage: 4TH DOSE
     Route: 042
     Dates: start: 20071211, end: 20081107
  2. REMICADE [Suspect]
     Indication: RHEUMATOID ARTHRITIS
     Dosage: 1ST DOSE
     Route: 042
     Dates: start: 20071211, end: 20081107

REACTIONS (3)
  - DEATH [None]
  - FRACTURE [None]
  - LUNG ADENOCARCINOMA [None]
